FAERS Safety Report 16146069 (Version 2)
Quarter: 2019Q2

REPORT INFORMATION
  Report Type: Report from Study
  Country: IT (occurrence: IT)
  Receive Date: 20190402
  Receipt Date: 20190610
  Transmission Date: 20190711
  Serious: Yes (Other)
  Sender: FDA-Public Use
  Company Number: IT-ACCORD-117604

PATIENT
  Age: 15 Year
  Sex: Male
  Weight: 65 kg

DRUGS (2)
  1. RISPERIDONE. [Interacting]
     Active Substance: RISPERIDONE
     Indication: AUTISM SPECTRUM DISORDER
     Route: 048
     Dates: start: 20170601, end: 20190121
  2. ARIPIPRAZOLE. [Suspect]
     Active Substance: ARIPIPRAZOLE
     Indication: AUTISM SPECTRUM DISORDER
     Route: 048
     Dates: start: 20180801, end: 20190121

REACTIONS (3)
  - Drug interaction [Unknown]
  - Off label use [Unknown]
  - Sinus arrhythmia [Not Recovered/Not Resolved]

NARRATIVE: CASE EVENT DATE: 20190116
